FAERS Safety Report 10171013 (Version 1)
Quarter: 2014Q2

REPORT INFORMATION
  Report Type: Spontaneous
  Country: BE (occurrence: BE)
  Receive Date: 20140514
  Receipt Date: 20140514
  Transmission Date: 20141212
  Serious: Yes (Other)
  Sender: FDA-Public Use
  Company Number: BE-ASTELLAS-2014EU004804

PATIENT
  Sex: Male

DRUGS (1)
  1. TACROLIMUS [Suspect]
     Indication: IMMUNOSUPPRESSION
     Dosage: UNK UNK, UNKNOWN FREQ.
     Route: 065

REACTIONS (8)
  - Obliterative bronchiolitis [Recovering/Resolving]
  - Atelectasis [Recovering/Resolving]
  - Bronchopneumonia [Recovering/Resolving]
  - Transplant rejection [Recovered/Resolved]
  - Convulsion [Recovered/Resolved]
  - Hypertension [Recovered/Resolved]
  - Escherichia sepsis [Recovered/Resolved]
  - Cholangitis [Recovered/Resolved]
